FAERS Safety Report 15321375 (Version 3)
Quarter: 2018Q4

REPORT INFORMATION
  Report Type: Spontaneous
  Country: JP (occurrence: JP)
  Receive Date: 20180827
  Receipt Date: 20181017
  Transmission Date: 20190204
  Serious: Yes (Other)
  Sender: FDA-Public Use
  Company Number: JP-PFIZER INC-2018340186

PATIENT
  Age: 45 Year
  Sex: Female

DRUGS (5)
  1. EFFEXOR [Suspect]
     Active Substance: VENLAFAXINE HYDROCHLORIDE
     Dosage: 150 (UNITS UNKNOWN) 1X/DAY
     Route: 048
     Dates: start: 20180523, end: 20180730
  2. EFFEXOR [Suspect]
     Active Substance: VENLAFAXINE HYDROCHLORIDE
     Dosage: 37.5 (UNITS UNKNOWN) 1X/DAY
     Route: 048
     Dates: start: 20180502, end: 20180507
  3. RIZE [CLOTIAZEPAM] [Suspect]
     Active Substance: CLOTIAZEPAM
     Dosage: 5 UNK, 3X/DAY
     Route: 048
     Dates: start: 20180503, end: 20180730
  4. BELSOMRA [Concomitant]
     Active Substance: SUVOREXANT
     Dosage: 20 UNK, DAILY
     Route: 048
     Dates: start: 20180308
  5. EFFEXOR [Suspect]
     Active Substance: VENLAFAXINE HYDROCHLORIDE
     Dosage: 75 (UNITS UNKNOWN) 1X/DAY
     Route: 048
     Dates: start: 20180508, end: 20180522

REACTIONS (3)
  - Eczema [Recovered/Resolved]
  - Mental impairment [Unknown]
  - Drug eruption [Recovered/Resolved]

NARRATIVE: CASE EVENT DATE: 2018
